FAERS Safety Report 19050321 (Version 4)
Quarter: 2024Q3

REPORT INFORMATION
  Report Type: Spontaneous
  Country: GB (occurrence: GB)
  Receive Date: 20210324
  Receipt Date: 20240919
  Transmission Date: 20241016
  Serious: Yes (Death, Other)
  Sender: AUROBINDO
  Company Number: GB-PFIZER INC-2021177660

PATIENT
  Age: 22 Year
  Sex: Female

DRUGS (29)
  1. MEROPENEM [Suspect]
     Active Substance: MEROPENEM
     Indication: Neutropenic sepsis
     Dosage: UNK
     Route: 065
  2. MEROPENEM [Suspect]
     Active Substance: MEROPENEM
     Indication: Fungal infection
     Dosage: 2 GRAM, ONCE A DAY (2 G, 1X/DAY)
     Route: 042
     Dates: start: 20080529, end: 20080618
  3. MEROPENEM [Suspect]
     Active Substance: MEROPENEM
     Indication: Enterococcal infection
  4. MEROPENEM [Suspect]
     Active Substance: MEROPENEM
     Indication: Aplastic anaemia
  5. MEROPENEM [Suspect]
     Active Substance: MEROPENEM
     Indication: Haemorrhage
  6. CYCLOSPORINE [Suspect]
     Active Substance: CYCLOSPORINE
     Indication: Aplastic anaemia
     Dosage: UNK
     Route: 065
  7. CYCLOSPORINE [Suspect]
     Active Substance: CYCLOSPORINE
     Indication: Haemorrhage
     Dosage: UNK
     Route: 065
     Dates: start: 200805
  8. CYCLOSPORINE [Suspect]
     Active Substance: CYCLOSPORINE
     Indication: Brain oedema
  9. CYCLOSPORINE [Suspect]
     Active Substance: CYCLOSPORINE
     Indication: Fungal infection
  10. CYCLOSPORINE [Suspect]
     Active Substance: CYCLOSPORINE
     Indication: Enterococcal infection
  11. CYCLOSPORINE [Suspect]
     Active Substance: CYCLOSPORINE
     Indication: Neutropenic sepsis
  12. DAPTOMYCIN [Suspect]
     Active Substance: DAPTOMYCIN
     Indication: Haemorrhage
     Dosage: UNK
     Route: 065
  13. DAPTOMYCIN [Suspect]
     Active Substance: DAPTOMYCIN
     Indication: Fungal infection
  14. DAPTOMYCIN [Suspect]
     Active Substance: DAPTOMYCIN
     Indication: Aplastic anaemia
  15. DAPTOMYCIN [Suspect]
     Active Substance: DAPTOMYCIN
     Indication: Enterococcal infection
  16. DAPTOMYCIN [Suspect]
     Active Substance: DAPTOMYCIN
     Indication: Neutropenic sepsis
  17. CUBICIN [Suspect]
     Active Substance: DAPTOMYCIN
     Indication: Enterococcal infection
     Dosage: 350 MILLIGRAM
     Route: 065
  18. CUBICIN [Suspect]
     Active Substance: DAPTOMYCIN
     Indication: Enterococcal sepsis
     Dosage: 350 MG, ALTERNATE DAY
     Route: 042
     Dates: start: 20080609, end: 20080618
  19. CUBICIN [Suspect]
     Active Substance: DAPTOMYCIN
     Indication: Haemorrhage
  20. CUBICIN [Suspect]
     Active Substance: DAPTOMYCIN
     Indication: Aplastic anaemia
  21. CUBICIN [Suspect]
     Active Substance: DAPTOMYCIN
     Indication: Neutropenic sepsis
  22. CANCIDAS [Concomitant]
     Active Substance: CASPOFUNGIN ACETATE
     Indication: Product used for unknown indication
     Dosage: UNK
     Route: 065
  23. CANCIDAS [Concomitant]
     Active Substance: CASPOFUNGIN ACETATE
     Dosage: 35 MILLIGRAM
     Route: 042
     Dates: start: 200805
  24. CASPOFUNGIN [Concomitant]
     Active Substance: CASPOFUNGIN
     Indication: Fungal infection
     Dosage: UNK
     Route: 065
  25. CASPOFUNGIN [Concomitant]
     Active Substance: CASPOFUNGIN
     Dosage: 35 MILLIGRAM, DAILY
     Route: 042
     Dates: start: 200805
  26. LEVETIRACETAM [Concomitant]
     Active Substance: LEVETIRACETAM
     Indication: Product used for unknown indication
     Dosage: UNK
     Route: 065
  27. THIOPENTAL [Concomitant]
     Active Substance: THIOPENTAL
     Indication: Product used for unknown indication
     Dosage: UNK
     Route: 065
  28. TRANEXAMIC ACID [Concomitant]
     Active Substance: TRANEXAMIC ACID
     Indication: Haemorrhage
     Dosage: UNK
     Route: 065
  29. TRANEXAMIC ACID [Concomitant]
     Active Substance: TRANEXAMIC ACID
     Dosage: 1 GRAM, 3 TIMES A DAY (1 G, 3X/DAY)
     Route: 042
     Dates: start: 20080602, end: 20080618

REACTIONS (7)
  - Death [Fatal]
  - Haemorrhage intracranial [Fatal]
  - Brain oedema [Fatal]
  - Seizure [Fatal]
  - Enterococcal sepsis [Fatal]
  - Nosocomial infection [Fatal]
  - Fungal infection [Fatal]

NARRATIVE: CASE EVENT DATE: 20080616
